FAERS Safety Report 17578109 (Version 2)
Quarter: 2020Q3

REPORT INFORMATION
  Report Type: Report from Study
  Country: DO (occurrence: DO)
  Receive Date: 20200324
  Receipt Date: 20200721
  Transmission Date: 20201102
  Serious: Yes (Hospitalization)
  Sender: FDA-Public Use
  Company Number: NVSC2020DO082631

PATIENT
  Age: 74 Year
  Sex: Male

DRUGS (2)
  1. VYMADA [Interacting]
     Active Substance: SACUBITRIL\VALSARTAN
     Dosage: 2 DF, QD
     Route: 048
  2. VYMADA [Suspect]
     Active Substance: SACUBITRIL\VALSARTAN
     Indication: PRODUCT USED FOR UNKNOWN INDICATION
     Dosage: 50 MG, QD (FROM 2 TO 3 YEARS)
     Route: 048
     Dates: start: 20180925

REACTIONS (4)
  - Cardiac disorder [Unknown]
  - Wrong technique in product usage process [Unknown]
  - Obesity [Unknown]
  - Fluid retention [Unknown]
